FAERS Safety Report 9837059 (Version 1)
Quarter: 2014Q1

REPORT INFORMATION
  Report Type: Report from Study
  Country: MX (occurrence: MX)
  Receive Date: 20140123
  Receipt Date: 20140123
  Transmission Date: 20141002
  Serious: Yes (Life-Threatening, Other)
  Sender: FDA-Public Use
  Company Number: PHHY2014MX004929

PATIENT
  Age: 45 Year
  Sex: Female

DRUGS (3)
  1. FORADILE [Suspect]
     Indication: ASTHMA
     Dosage: 1 DF, PRN
     Route: 055
     Dates: start: 201201
  2. MIFLONIDE [Suspect]
     Indication: ASTHMA
     Dosage: 1 DF, PRN
     Route: 055
     Dates: start: 201201
  3. AMLODIPINE [Suspect]
     Indication: HYPERTENSION
     Dosage: 1 DF, DAILY
     Route: 048
     Dates: start: 201305, end: 201311

REACTIONS (6)
  - Feeling abnormal [Recovered/Resolved]
  - Blindness transient [Recovered/Resolved]
  - Arrhythmia [Not Recovered/Not Resolved]
  - Blood pressure increased [Recovering/Resolving]
  - Stress [Recovering/Resolving]
  - Inflammation [Recovered/Resolved]
